FAERS Safety Report 7906526-8 (Version None)
Quarter: 2011Q4

REPORT INFORMATION
  Report Type: 
  Country: None (occurrence: None)
  Receive Date: 20111110
  Receipt Date: 20111104
  Transmission Date: 20120403
  Serious: Yes (Hospitalization)
  Sender: FDA-Public Use
  Company Number: US-B.I. PHARMACEUTICALS,INC./RIDGEFIELD-2011-BP-25618BP

PATIENT
  Sex: Male

DRUGS (13)
  1. LISINOPRIL [Concomitant]
     Indication: HYPERTENSION
     Dosage: 2.5 MG
  2. ASPIRIN [Concomitant]
     Indication: ATRIAL FIBRILLATION
     Dosage: 81 MG
  3. PRADAXA [Suspect]
     Dosage: 150 MG
     Route: 048
     Dates: start: 20110501
  4. FISH OIL [Concomitant]
     Indication: SUPPLEMENTATION THERAPY
  5. ASCORBIC ACID [Concomitant]
     Indication: SUPPLEMENTATION THERAPY
  6. PRILOSEC [Concomitant]
     Indication: GASTROOESOPHAGEAL REFLUX DISEASE
     Dosage: 20 MG
  7. LIPITOR [Concomitant]
  8. FLOMAX [Concomitant]
     Indication: BENIGN PROSTATIC HYPERPLASIA
  9. FLUOXETINE HCL [Concomitant]
     Indication: DEPRESSION
     Dosage: 20 MG
  10. PRADAXA [Suspect]
     Indication: ATRIAL FIBRILLATION
     Dosage: 300 MG
     Route: 048
     Dates: start: 20110301, end: 20110501
  11. COREG [Concomitant]
     Indication: HYPERTENSION
     Dosage: 3.125 MG
  12. SIMVASTATIN [Concomitant]
     Indication: BLOOD CHOLESTEROL INCREASED
  13. LASIX [Concomitant]
     Dosage: 20 MG

REACTIONS (5)
  - FLUID OVERLOAD [None]
  - HAEMATOMA [None]
  - HAEMORRHAGE [None]
  - DYSPNOEA [None]
  - HEART RATE IRREGULAR [None]
